FAERS Safety Report 8333119-3 (Version None)
Quarter: 2012Q2

REPORT INFORMATION
  Report Type: 
  Country: None (occurrence: None)
  Receive Date: 20120503
  Receipt Date: 20120425
  Transmission Date: 20120825
  Serious: Yes (Other)
  Sender: FDA-Public Use
  Company Number: US-VERTEX PHARMACEUTICALS INC.-AE-2012-005257

PATIENT
  Sex: Female

DRUGS (3)
  1. RIBASPHERE [Concomitant]
     Indication: HEPATITIS C
     Dates: start: 20120207, end: 20120301
  2. PEGASYS [Concomitant]
     Indication: HEPATITIS C
     Dates: start: 20120207, end: 20120301
  3. INCIVEK [Suspect]
     Indication: HEPATITIS C
     Route: 048
     Dates: start: 20120207, end: 20120301

REACTIONS (8)
  - MUSCLE SPASMS [None]
  - PLATELET COUNT DECREASED [None]
  - NAUSEA [None]
  - ABDOMINAL PAIN UPPER [None]
  - FATIGUE [None]
  - DYSPNOEA EXERTIONAL [None]
  - NEUTROPHIL COUNT DECREASED [None]
  - VOMITING [None]
